FAERS Safety Report 9830268 (Version 3)
Quarter: 2014Q2

REPORT INFORMATION
  Report Type: Spontaneous
  Country: US (occurrence: US)
  Receive Date: 20140120
  Receipt Date: 20140526
  Transmission Date: 20141212
  Serious: Yes (Hospitalization)
  Sender: FDA-Public Use
  Company Number: US-AMGEN-USASP2014002685

PATIENT
  Age: 58 Year
  Sex: Female
  Weight: 81.09 kg

DRUGS (7)
  1. NEUPOGEN [Suspect]
     Indication: NEUTROPENIA
     Dosage: 480 MCG, DAILY X 2
     Route: 058
     Dates: start: 20131029, end: 20131030
  2. NEULASTA [Suspect]
     Indication: PRODUCT USED FOR UNKNOWN INDICATION
     Dosage: 6 MG, Q2WK
     Route: 058
     Dates: start: 20131109
  3. ADRIAMYCIN                         /00330901/ [Concomitant]
     Indication: BREAST CANCER
     Dosage: 113 MG, Q2WK
     Route: 042
     Dates: start: 20131108, end: 20131220
  4. CYTOXAN [Concomitant]
     Indication: BREAST CANCER
     Dosage: 1130 MG, Q2WK
     Route: 042
     Dates: start: 20131108, end: 20131220
  5. ATIVAN [Concomitant]
     Indication: ANXIETY
     Dosage: 1 MG, AS NECESSARY
     Route: 048
     Dates: start: 20131008
  6. TYLENOL EXTRA STRENGTH [Concomitant]
     Indication: PAIN
     Dosage: 500 MG, AS NECESSARY
     Route: 048
     Dates: start: 2013, end: 20131205
  7. RANITIDINE [Concomitant]
     Indication: PROPHYLAXIS
     Dosage: 300 MG, BID
     Route: 048
     Dates: start: 20131007

REACTIONS (10)
  - Breath sounds abnormal [Unknown]
  - Productive cough [Unknown]
  - Wheezing [Unknown]
  - Back pain [Recovered/Resolved]
  - Chest pain [Recovered/Resolved]
  - Febrile neutropenia [Recovered/Resolved]
  - Lung infiltration [Unknown]
  - Myalgia [Recovering/Resolving]
  - Fatigue [Unknown]
  - Nasopharyngitis [Unknown]
